FAERS Safety Report 16015823 (Version 5)
Quarter: 2021Q1

REPORT INFORMATION
  Report Type: Spontaneous
  Country: DE (occurrence: DE)
  Receive Date: 20190228
  Receipt Date: 20210119
  Transmission Date: 20210419
  Serious: Yes (Hospitalization, Other)
  Sender: FDA-Public Use
  Company Number: DE-IPSEN BIOPHARMACEUTICALS, INC.-2019-02888

PATIENT
  Age: 66 Year
  Sex: Female
  Weight: 70 kg

DRUGS (5)
  1. CIRCADIN [Concomitant]
     Active Substance: MELATONIN
     Dosage: 0?0?0?1 (FOR SEVERAL YEARS NOW)
  2. OMERAZOLE [Concomitant]
     Active Substance: OMEPRAZOLE
     Dosage: 1?0?0 (FOR SEVERAL YEARS NOW)
  3. DRONABINOL. [Concomitant]
     Active Substance: DRONABINOL
     Dosage: (FOR SEVERAL MONTHS)
     Dates: end: 20180717
  4. CLOPIDOGREL [Concomitant]
     Active Substance: CLOPIDOGREL BISULFATE
     Dosage: 1?0?0 (FOR SEVERAL YEARS NOW)
  5. DYSPORT [Suspect]
     Active Substance: ABOBOTULINUMTOXINA
     Indication: HEMIPARESIS
     Dosage: 1350 UNITS
     Route: 030
     Dates: start: 20180704, end: 20180704

REACTIONS (4)
  - Immobile [Recovered/Resolved]
  - Myasthenic syndrome [Recovered/Resolved]
  - Aphasia [Recovered/Resolved]
  - Dysarthria [Recovered/Resolved]

NARRATIVE: CASE EVENT DATE: 20180717
